FAERS Safety Report 16918122 (Version 5)
Quarter: 2019Q4

REPORT INFORMATION
  Report Type: Report from Study
  Country: US (occurrence: US)
  Receive Date: 20191015
  Receipt Date: 20191121
  Transmission Date: 20200122
  Serious: Yes (Hospitalization)
  Sender: FDA-Public Use
  Company Number: US-JNJFOC-20191015235

PATIENT
  Age: 79 Year
  Sex: Male
  Weight: 97.16 kg

DRUGS (20)
  1. METOPROLOL. [Concomitant]
     Active Substance: METOPROLOL
     Indication: HYPERTENSION
     Route: 048
     Dates: start: 2017
  2. VITAMIN B COMPLEX WITH C [Concomitant]
     Active Substance: ASCORBIC ACID\CALCIUM PANTOTHENATE\CYANOCOBALAMIN\NIACINAMIDE\PYRIDOXINE HYDROCHLORIDE\RIBOFLAVIN\THIAMINE MONONITRATE
     Indication: ROUTINE HEALTH MAINTENANCE
     Dosage: 1 DF
     Route: 048
     Dates: start: 2017
  3. APIXABAN [Concomitant]
     Active Substance: APIXABAN
     Indication: DEEP VEIN THROMBOSIS
     Route: 048
     Dates: start: 201906
  4. METFORMIN [Concomitant]
     Active Substance: METFORMIN HYDROCHLORIDE
     Indication: TYPE 2 DIABETES MELLITUS
     Route: 048
     Dates: start: 201906
  5. PREDNISONE. [Concomitant]
     Active Substance: PREDNISONE
     Indication: PROSTATE CANCER METASTATIC
     Route: 048
     Dates: start: 20190917
  6. MAGNESIUM                          /00454301/ [Concomitant]
     Indication: HYPOMAGNESAEMIA
     Route: 048
     Dates: start: 2016
  7. POTASSIUM [Concomitant]
     Active Substance: POTASSIUM
     Indication: HYPOKALAEMIA
     Route: 048
     Dates: start: 2016
  8. HAEMATOCOCCUS PLUVIALIS W/RETINOL ACETATE/SOD [Concomitant]
     Indication: ROUTINE HEALTH MAINTENANCE
     Route: 048
     Dates: start: 2017
  9. MELATONIN [Concomitant]
     Active Substance: MELATONIN
     Indication: INSOMNIA
     Route: 048
     Dates: start: 2017
  10. THIOCTIC ACID [Concomitant]
     Active Substance: .ALPHA.-LIPOIC ACID
     Indication: ROUTINE HEALTH MAINTENANCE
     Dosage: 300/600 MG
     Route: 048
     Dates: start: 2017
  11. UBIDECARENONE [Concomitant]
     Active Substance: UBIDECARENONE
     Indication: ROUTINE HEALTH MAINTENANCE
     Route: 048
     Dates: start: 2017
  12. QUINAPRIL. [Concomitant]
     Active Substance: QUINAPRIL
     Indication: HYPERTENSION
     Route: 048
     Dates: start: 2017
  13. FISH OIL [Concomitant]
     Active Substance: FISH OIL
     Indication: ROUTINE HEALTH MAINTENANCE
     Route: 048
     Dates: start: 2017
  14. ABIRATERONE ACETATE. [Suspect]
     Active Substance: ABIRATERONE ACETATE
     Indication: PROSTATE CANCER METASTATIC
     Route: 048
     Dates: start: 20190917
  15. AMLODIPINE [Concomitant]
     Active Substance: AMLODIPINE BESYLATE
     Indication: HYPERTENSION
     Route: 048
     Dates: start: 2017, end: 20190927
  16. LYCOPENE [Concomitant]
     Active Substance: LYCOPENE
     Indication: ROUTINE HEALTH MAINTENANCE
     Route: 048
     Dates: start: 2017
  17. METFORMIN [Suspect]
     Active Substance: METFORMIN HYDROCHLORIDE
     Indication: TYPE 2 DIABETES MELLITUS
     Route: 048
     Dates: start: 2017
  18. MELOXICAM. [Concomitant]
     Active Substance: MELOXICAM
     Indication: BACK PAIN
     Route: 048
     Dates: start: 2016
  19. SPIRONOLACTONE. [Concomitant]
     Active Substance: SPIRONOLACTONE
     Indication: OEDEMA PERIPHERAL
     Route: 048
     Dates: start: 201706
  20. ZOLPIDEM [Concomitant]
     Active Substance: ZOLPIDEM TARTRATE
     Indication: INSOMNIA
     Route: 048
     Dates: start: 2017

REACTIONS (4)
  - Fatigue [Not Recovered/Not Resolved]
  - Rash maculo-papular [Recovered/Resolved]
  - Diarrhoea [Recovered/Resolved]
  - Acute kidney injury [Recovered/Resolved]

NARRATIVE: CASE EVENT DATE: 20190917
